FAERS Safety Report 5036662-8 (Version None)
Quarter: 2006Q2

REPORT INFORMATION
  Report Type: 
  Country: None (occurrence: None)
  Receive Date: 20060623
  Receipt Date: 20060614
  Transmission Date: 20061013
  Serious: Yes (Hospitalization, Other)
  Sender: FDA-Public Use
  Company Number: 2006074035

PATIENT
  Sex: Female

DRUGS (3)
  1. LYRICA [Suspect]
     Indication: NEURALGIA
     Dosage: 75 MG (75 MG, 1 IN 1 D), ORAL
     Route: 048
     Dates: start: 20060606, end: 20060606
  2. VICTAN                 (ETHYL LOFLAZEPATE) [Suspect]
     Indication: ILL-DEFINED DISORDER
     Dosage: (2 MG), ORAL
     Route: 048
  3. SERTRALINE [Concomitant]

REACTIONS (11)
  - AMNESIA [None]
  - ARRHYTHMIA [None]
  - BLINDNESS [None]
  - CONFUSIONAL STATE [None]
  - DIZZINESS [None]
  - DRUG INTERACTION [None]
  - FATIGUE [None]
  - HEADACHE [None]
  - HYPERTENSION [None]
  - HYPOAESTHESIA [None]
  - SOMNOLENCE [None]
